FAERS Safety Report 6255775-6 (Version None)
Quarter: 2009Q3

REPORT INFORMATION
  Report Type: 
  Country: None (occurrence: None)
  Receive Date: 20090702
  Receipt Date: 20090630
  Transmission Date: 20100115
  Serious: Yes (Other)
  Sender: FDA-Public Use
  Company Number: DE-JNJCH-2009017534

PATIENT
  Sex: Female

DRUGS (1)
  1. REGAINE FRAUEN [Suspect]
     Indication: DRUG USE FOR UNKNOWN INDICATION
     Dosage: TEXT:UNSPECIFIED
     Route: 061

REACTIONS (2)
  - ALOPECIA [None]
  - SUPRAVENTRICULAR EXTRASYSTOLES [None]
